FAERS Safety Report 17026320 (Version 1)
Quarter: 2019Q4

REPORT INFORMATION
  Report Type: Spontaneous
  Country: US (occurrence: US)
  Receive Date: 20191113
  Receipt Date: 20191113
  Transmission Date: 20200122
  Serious: Yes (Other)
  Sender: FDA-Public Use
  Company Number: US-SA-2019SA310603

PATIENT
  Sex: Male

DRUGS (1)
  1. TOUJEO [Suspect]
     Active Substance: INSULIN GLARGINE
     Indication: TYPE 2 DIABETES MELLITUS
     Dosage: 80 U, HS
     Route: 065

REACTIONS (4)
  - Pancreaticoduodenectomy [Unknown]
  - Product storage error [Unknown]
  - Dementia Alzheimer^s type [Unknown]
  - Mental disorder [Unknown]
